FAERS Safety Report 20169372 (Version 1)
Quarter: 2021Q4

REPORT INFORMATION
  Report Type: Spontaneous
  Country: US (occurrence: US)
  Receive Date: 20211210
  Receipt Date: 20211210
  Transmission Date: 20220303
  Serious: No
  Sender: FDA-Public Use
  Company Number: US-GLAXOSMITHKLINE-US2021248069

PATIENT
  Sex: Female

DRUGS (1)
  1. ZEJULA [Suspect]
     Active Substance: NIRAPARIB
     Indication: Ovarian cancer
     Dosage: 100 MG, BID (100MG EVERY MORNING, 100MG EVERY EVENING)
     Route: 048
     Dates: start: 20211120

REACTIONS (4)
  - Dizziness [Unknown]
  - Headache [Unknown]
  - Off label use [Unknown]
  - Drug monitoring procedure not performed [Unknown]
